FAERS Safety Report 20201337 (Version 3)
Quarter: 2022Q3

REPORT INFORMATION
  Report Type: Spontaneous
  Country: US (occurrence: None)
  Receive Date: 20211217
  Receipt Date: 20220802
  Transmission Date: 20221026
  Serious: Yes (Disabling, Other)
  Sender: FDA-Public Use
  Company Number: 2021A869685

PATIENT
  Age: 63 Year
  Sex: Female
  Weight: 74.8 kg

DRUGS (48)
  1. NEXIUM [Suspect]
     Active Substance: ESOMEPRAZOLE MAGNESIUM
     Indication: Gastrooesophageal reflux disease
     Route: 048
     Dates: start: 2015, end: 2017
  2. NEXIUM [Suspect]
     Active Substance: ESOMEPRAZOLE MAGNESIUM
     Indication: Gastrooesophageal reflux disease
     Route: 048
     Dates: start: 2015, end: 2017
  3. NEXIUM [Suspect]
     Active Substance: ESOMEPRAZOLE MAGNESIUM
     Indication: Gastrooesophageal reflux disease
     Dosage: GENERIC
     Route: 065
     Dates: start: 2015, end: 2017
  4. NEXIUM [Suspect]
     Active Substance: ESOMEPRAZOLE MAGNESIUM
     Indication: Gastrooesophageal reflux disease
     Dosage: GENERIC
     Route: 065
     Dates: start: 2015, end: 2017
  5. NEXIUM [Suspect]
     Active Substance: ESOMEPRAZOLE MAGNESIUM
     Indication: Gastrooesophageal reflux disease
     Dosage: GENERIC
     Route: 065
     Dates: start: 2015, end: 2017
  6. NEXIUM [Suspect]
     Active Substance: ESOMEPRAZOLE MAGNESIUM
     Indication: Gastrooesophageal reflux disease
     Dosage: GENERIC
     Route: 065
     Dates: start: 2015, end: 2017
  7. PROTONIX [Suspect]
     Active Substance: PANTOPRAZOLE SODIUM
     Indication: Gastrooesophageal reflux disease
     Dosage: GENERIC
     Route: 065
     Dates: start: 2016, end: 2018
  8. PROTONIX [Suspect]
     Active Substance: PANTOPRAZOLE SODIUM
     Indication: Gastrooesophageal reflux disease
     Dosage: GENERIC
     Route: 065
     Dates: start: 2016, end: 2018
  9. PROTONIX [Suspect]
     Active Substance: PANTOPRAZOLE SODIUM
     Indication: Gastrooesophageal reflux disease
     Dosage: GENERIC
     Route: 065
     Dates: start: 2016, end: 2018
  10. PROTONIX [Suspect]
     Active Substance: PANTOPRAZOLE SODIUM
     Indication: Gastrooesophageal reflux disease
     Dosage: GENERIC
     Route: 065
     Dates: start: 2016, end: 2018
  11. PROTONIX [Suspect]
     Active Substance: PANTOPRAZOLE SODIUM
     Indication: Gastrooesophageal reflux disease
     Route: 065
     Dates: start: 2016
  12. PROTONIX [Suspect]
     Active Substance: PANTOPRAZOLE SODIUM
     Indication: Gastrooesophageal reflux disease
     Route: 065
     Dates: start: 2016
  13. HYDRALAZINE [Concomitant]
     Active Substance: HYDRALAZINE HYDROCHLORIDE
     Indication: Hypertension
     Dates: start: 2015, end: 2018
  14. TRAMADOL [Concomitant]
     Active Substance: TRAMADOL
     Indication: Pain
     Dates: start: 2015, end: 2018
  15. LEVOFLOXACIN [Concomitant]
     Active Substance: LEVOFLOXACIN
     Indication: Infection
     Dates: start: 2014, end: 2018
  16. TRIMETHOPRIM/SULFAMETHIZOLE [Concomitant]
     Indication: Infection
     Dates: start: 2015
  17. FUROSEMIDE [Concomitant]
     Active Substance: FUROSEMIDE
     Indication: Infection
     Dates: start: 2015
  18. LOSARTAN [Concomitant]
     Active Substance: LOSARTAN
     Indication: Hypertension
     Dates: start: 2015, end: 2018
  19. SIMVASTATIN [Concomitant]
     Active Substance: SIMVASTATIN
     Indication: Blood cholesterol
     Dates: start: 2015, end: 2016
  20. BUMETANIDE [Concomitant]
     Active Substance: BUMETANIDE
     Indication: Fluid retention
     Dates: start: 2016, end: 2018
  21. BUMETANIDE [Concomitant]
     Active Substance: BUMETANIDE
     Indication: Swelling
     Dates: start: 2016, end: 2018
  22. ALLOPURINOL [Concomitant]
     Active Substance: ALLOPURINOL
     Indication: Pain
     Dates: start: 2016, end: 2018
  23. ALLOPURINOL [Concomitant]
     Active Substance: ALLOPURINOL
     Indication: Swelling
     Dates: start: 2016, end: 2018
  24. AZITHROMYCIN [Concomitant]
     Active Substance: AZITHROMYCIN
     Indication: Infection
     Dates: start: 2017
  25. AMOXICILLIN\CLAVULANIC ACID [Concomitant]
     Active Substance: AMOXICILLIN\CLAVULANIC ACID
     Indication: Infection
     Dates: start: 2018
  26. ASPIRIN [Concomitant]
     Active Substance: ASPIRIN
     Indication: Pain
     Dates: start: 2017
  27. VITAMIN D2 [Concomitant]
     Active Substance: ERGOCALCIFEROL
     Indication: Vitamin D deficiency
     Dates: start: 2017
  28. GABAPENTIN [Concomitant]
     Active Substance: GABAPENTIN
  29. LANTUS [Concomitant]
     Active Substance: INSULIN GLARGINE
  30. NIFIDEPIN [Concomitant]
  31. METOPROLOL [Concomitant]
     Active Substance: METOPROLOL
  32. XARELTO [Concomitant]
     Active Substance: RIVAROXABAN
  33. NOVOLOG [Concomitant]
     Active Substance: INSULIN ASPART
  34. OMEGA 3 [Concomitant]
     Active Substance: CAPSAICIN
  35. DULOXETINE [Concomitant]
     Active Substance: DULOXETINE
  36. ADVAIR HFA [Concomitant]
     Active Substance: FLUTICASONE PROPIONATE\SALMETEROL XINAFOATE
  37. ISOSORBIDE DINITRATE [Concomitant]
     Active Substance: ISOSORBIDE DINITRATE
  38. CARVEDILOL [Concomitant]
     Active Substance: CARVEDILOL
  39. CLONIDINE [Concomitant]
     Active Substance: CLONIDINE
  40. HUMALOG [Concomitant]
     Active Substance: INSULIN LISPRO
  41. TEMAZEPAM [Concomitant]
     Active Substance: TEMAZEPAM
  42. LOVAZA [Concomitant]
     Active Substance: OMEGA-3-ACID ETHYL ESTERS
  43. INSULIN NOS [Concomitant]
     Active Substance: INSULIN NOS
  44. RIVAROXABAN [Concomitant]
     Active Substance: RIVAROXABAN
  45. LASIX [Concomitant]
     Active Substance: FUROSEMIDE
  46. CYMBALTA [Concomitant]
     Active Substance: DULOXETINE HYDROCHLORIDE
  47. RENVELA [Concomitant]
     Active Substance: SEVELAMER CARBONATE
  48. BUMEX [Concomitant]
     Active Substance: BUMETANIDE

REACTIONS (6)
  - Acute kidney injury [Not Recovered/Not Resolved]
  - Chronic kidney disease [Not Recovered/Not Resolved]
  - End stage renal disease [Not Recovered/Not Resolved]
  - Renal failure [Unknown]
  - Nephrogenic anaemia [Unknown]
  - Renal tubular necrosis [Unknown]

NARRATIVE: CASE EVENT DATE: 20160101
